FAERS Safety Report 9337271 (Version 4)
Quarter: 2014Q1

REPORT INFORMATION
  Report Type: Report from Study
  Country: JP (occurrence: JP)
  Receive Date: 20130607
  Receipt Date: 20140315
  Transmission Date: 20141002
  Serious: Yes (Other)
  Sender: FDA-Public Use
  Company Number: JP-AMGEN-JPNCT2013040424

PATIENT
  Age: 71 Year
  Sex: Male

DRUGS (12)
  1. DENOSUMAB [Suspect]
     Indication: METASTASES TO BONE
     Dosage: 120 MG, UNK
     Route: 058
     Dates: start: 20121011, end: 20130502
  2. LEUPLIN [Concomitant]
     Dosage: UNK
     Route: 065
     Dates: start: 20080916
  3. PREDNISOLONE [Concomitant]
     Dosage: 5 MG, BID
     Route: 048
     Dates: start: 20110830
  4. DOCETAXEL [Concomitant]
     Dosage: 96 MG, QD
     Route: 041
     Dates: start: 20110830, end: 20120704
  5. TAKEPRON [Concomitant]
     Dosage: UNK
     Route: 048
     Dates: start: 20110830
  6. HERBAL EXTRACT NOS [Concomitant]
     Dosage: UNK
     Route: 048
     Dates: start: 20120531
  7. NICOTINELL TTS [Concomitant]
     Dosage: UNK
     Route: 050
     Dates: start: 20120914, end: 20130118
  8. JANUVIA [Concomitant]
     Dosage: UNK
     Route: 048
     Dates: start: 20120809
  9. LANTUS [Concomitant]
     Dosage: UNK
     Route: 058
     Dates: start: 20120831
  10. CALCIUM LACTATE [Concomitant]
     Dosage: UNK
     Route: 048
     Dates: start: 20121011
  11. ALFAROL [Concomitant]
     Dosage: UNK
     Route: 048
     Dates: start: 20121011
  12. ESTRAMUSTINE PHOSPHATE [Concomitant]
     Dosage: UNK
     Route: 065
     Dates: start: 20101016, end: 20110225

REACTIONS (2)
  - Osteonecrosis of jaw [Recovered/Resolved]
  - Hypocalcaemia [Recovered/Resolved]
